FAERS Safety Report 19730111 (Version 1)
Quarter: 2021Q3

REPORT INFORMATION
  Report Type: Spontaneous
  Country: GR (occurrence: GR)
  Receive Date: 20210820
  Receipt Date: 20210820
  Transmission Date: 20211014
  Serious: Yes (Disabling, Other)
  Sender: FDA-Public Use
  Company Number: GR-ALLERGAN-2128463US

PATIENT
  Sex: Male

DRUGS (9)
  1. HOLISTEN [Concomitant]
     Indication: DYSLIPIDAEMIA
     Dosage: UNK
     Route: 065
  2. SALOSPIR [Concomitant]
     Active Substance: ASPIRIN
     Indication: CEREBROVASCULAR ACCIDENT
     Route: 065
  3. TRANXENE [Concomitant]
     Active Substance: CLORAZEPATE DIPOTASSIUM
     Indication: EMOTIONAL DISORDER
     Dosage: 1/2 *1
     Route: 065
  4. CITALOPRAM HYDROBROMIDE ? BP [Suspect]
     Active Substance: CITALOPRAM HYDROBROMIDE
     Indication: EMOTIONAL DISORDER
     Dosage: UNK
     Route: 065
  5. FILICINE [Concomitant]
     Active Substance: FOLIC ACID
     Indication: PRODUCT USED FOR UNKNOWN INDICATION
     Route: 065
  6. COMIRNATY [Suspect]
     Active Substance: TOZINAMERAN
     Dosage: 1 DF, SINGLE
     Route: 065
     Dates: start: 20210602, end: 20210602
  7. COMIRNATY [Suspect]
     Active Substance: TOZINAMERAN
     Indication: COVID-19 IMMUNISATION
     Dosage: 1 DF, SINGLE
     Route: 065
     Dates: start: 20210623, end: 20210623
  8. MEDITHYROX [Concomitant]
     Indication: HYPOTHYROIDISM
     Route: 065
  9. HOLISTEN [Concomitant]
     Indication: CEREBROVASCULAR ACCIDENT
     Dosage: UNK

REACTIONS (5)
  - Loss of consciousness [Unknown]
  - Product use in unapproved indication [Unknown]
  - Aphasia [Unknown]
  - Gait disturbance [Unknown]
  - Cerebrovascular accident [Not Recovered/Not Resolved]

NARRATIVE: CASE EVENT DATE: 20210628
